FAERS Safety Report 9998002 (Version 2)
Quarter: 2014Q1

REPORT INFORMATION
  Report Type: Spontaneous
  Country: US (occurrence: US)
  Receive Date: 20140311
  Receipt Date: 20140326
  Transmission Date: 20141002
  Serious: Yes (Other)
  Sender: FDA-Public Use
  Company Number: US-LUNDBECK-DKLU1098119

PATIENT
  Age: 2 Year
  Sex: Female
  Weight: 16 kg

DRUGS (4)
  1. SABRIL (FOR ORAL SOLUTION) [Suspect]
     Indication: INFANTILE SPASMS
     Route: 048
     Dates: start: 201204, end: 20140219
  2. SABRIL (FOR ORAL SOLUTION) [Suspect]
     Indication: TUBEROUS SCLEROSIS
  3. DEPAKOTE [Concomitant]
     Indication: CONVULSION
  4. ZONEGRAN [Concomitant]
     Indication: CONVULSION

REACTIONS (3)
  - Grand mal convulsion [Not Recovered/Not Resolved]
  - Drug withdrawal convulsions [Not Recovered/Not Resolved]
  - Convulsion [Not Recovered/Not Resolved]
